FAERS Safety Report 5830757-4 (Version None)
Quarter: 2008Q3

REPORT INFORMATION
  Report Type: 
  Country: None (occurrence: None)
  Receive Date: 20080801
  Receipt Date: 20080411
  Transmission Date: 20090109
  Serious: No
  Sender: FDA-Public Use
  Company Number: US-BRISTOL-MYERS SQUIBB COMPANY-13978887

PATIENT
  Age: 83 Year
  Sex: Female
  Weight: 100 kg

DRUGS (9)
  1. COUMADIN [Suspect]
     Indication: HEART RATE IRREGULAR
     Dosage: (2MG)3DAYS;(4MG)4 DAYS-PO; FOR LAST 3 YEARS.
     Route: 048
  2. DIGITEK [Concomitant]
  3. TOPROL-XL [Concomitant]
  4. CLONIDINE [Concomitant]
  5. TEVETEN [Concomitant]
  6. PREVACID [Concomitant]
  7. LEVOXYL [Concomitant]
  8. VITAMIN D [Concomitant]
  9. FOLIC ACID [Concomitant]

REACTIONS (5)
  - BLUE TOE SYNDROME [None]
  - CONTUSION [None]
  - DIARRHOEA [None]
  - SKIN DISCOLOURATION [None]
  - WEIGHT INCREASED [None]
